FAERS Safety Report 10145499 (Version 3)
Quarter: 2014Q4

REPORT INFORMATION
  Report Type: Spontaneous
  Country: DE (occurrence: DE)
  Receive Date: 20140501
  Receipt Date: 20141104
  Transmission Date: 20150528
  Serious: Yes (Hospitalization)
  Sender: FDA-Public Use
  Company Number: DE-RANBAXY-2014RR-78230

PATIENT
  Age: 45 Year
  Sex: Male

DRUGS (1)
  1. FLUCONAZOL BASICS 150 MG KAPSELN [Suspect]
     Active Substance: FLUCONAZOLE
     Indication: PRODUCT USED FOR UNKNOWN INDICATION
     Dosage: 6 CAPSULES (TOTAL: 900 MG)
     Route: 048

REACTIONS (2)
  - Accidental exposure to product [Recovered/Resolved]
  - Accidental overdose [Recovered/Resolved]
